FAERS Safety Report 18304633 (Version 1)
Quarter: 2020Q3

REPORT INFORMATION
  Report Type: Spontaneous
  Country: US (occurrence: US)
  Receive Date: 20200923
  Receipt Date: 20200923
  Transmission Date: 20201103
  Serious: Yes (Other)
  Sender: FDA-Public Use
  Company Number: US-UCBSA-2020036993

PATIENT
  Sex: Female

DRUGS (1)
  1. NAYZILAM [Suspect]
     Active Substance: MIDAZOLAM
     Indication: SEIZURE
     Dosage: FORM STRENGTH: 5MG

REACTIONS (3)
  - Product dose omission issue [Unknown]
  - Device malfunction [Unknown]
  - Seizure cluster [Unknown]
